FAERS Safety Report 4984200-8 (Version None)
Quarter: 2006Q2

REPORT INFORMATION
  Report Type: 
  Country: None (occurrence: None)
  Receive Date: 20060420
  Receipt Date: 20060407
  Transmission Date: 20061013
  Serious: Yes (Other)
  Sender: FDA-Public Use
  Company Number: 2006048927

PATIENT
  Age: 75 Year
  Sex: Male
  Weight: 85 kg

DRUGS (5)
  1. LYRICA [Suspect]
     Indication: ILL-DEFINED DISORDER
     Dosage: 50 MG (25 MG, 2 IN 1 D), ORAL
     Route: 048
     Dates: start: 20060101, end: 20060301
  2. LISINOPRIL [Concomitant]
  3. ESIDRIX [Concomitant]
  4. HCT ^ISIS^ (HYDROCHLOROTHIAZIDE) [Concomitant]
  5. LEVOTHYROXINE SODIUM [Concomitant]

REACTIONS (1)
  - TORSADE DE POINTES [None]
